FAERS Safety Report 12603000 (Version 2)
Quarter: 2017Q3

REPORT INFORMATION
  Report Type: Spontaneous
  Country: FR (occurrence: FR)
  Receive Date: 20160728
  Receipt Date: 20170731
  Transmission Date: 20171127
  Serious: Yes (Hospitalization)
  Sender: FDA-Public Use
  Company Number: FR-PFIZER INC-2016355888

PATIENT
  Age: 56 Year
  Sex: Male

DRUGS (16)
  1. COLCHICINE. [Suspect]
     Active Substance: COLCHICINE
     Indication: GOUT
     Dosage: 0.5 MG, DAILY
     Route: 048
     Dates: start: 20160628, end: 20160630
  2. NEBIVOLOL. [Concomitant]
     Active Substance: NEBIVOLOL
     Dosage: 5 MG, 1X/DAY
  3. ZYVOXID [Suspect]
     Active Substance: LINEZOLID
     Indication: STAPHYLOCOCCAL INFECTION
     Dosage: 600 MG, 2X/DAY
     Route: 048
     Dates: start: 20160626, end: 20160630
  4. FLAGYL [Suspect]
     Active Substance: METRONIDAZOLE\METRONIDAZOLE HYDROCHLORIDE
     Indication: PNEUMONIA
     Dosage: 500 MG, 3X/DAY
     Route: 048
     Dates: start: 20160623, end: 20160630
  5. TARDYFERON [Concomitant]
     Active Substance: FERROUS SULFATE
     Dosage: 1 DF, 1X/DAY
  6. NEORAL [Concomitant]
     Active Substance: CYCLOSPORINE
     Dosage: 70 MG, 2X/DAY
  7. ROCEPHINE [Suspect]
     Active Substance: CEFTRIAXONE SODIUM
     Indication: PNEUMONIA
     Dosage: 2 G, DAILY
     Route: 042
     Dates: start: 20160623, end: 20160701
  8. MYFORTIC [Concomitant]
     Active Substance: MYCOPHENOLATE SODIUM
     Dosage: 180 MG, 2X/DAY
  9. PENTACARINAT [Concomitant]
     Active Substance: PENTAMIDINE ISETHIONATE
     Dosage: 300 MG, MONTHLY
     Route: 055
  10. ARANESP [Concomitant]
     Active Substance: DARBEPOETIN ALFA
     Dosage: UNK, MONTHLY
  11. UVEDOSE [Concomitant]
     Active Substance: CHOLECALCIFEROL
     Dosage: 1 DF, MONTHLY
  12. ICAZ [Concomitant]
     Active Substance: ISRADIPINE
     Dosage: 5 MG, 3X/DAY
  13. ROVAMYCINE /00074401/ [Suspect]
     Active Substance: SPIRAMYCIN
     Indication: PNEUMONIA
     Dosage: 2 DF, 3X/DAY
     Route: 041
     Dates: start: 20160623, end: 20160630
  14. WELLVONE [Suspect]
     Active Substance: ATOVAQUONE
     Indication: PROPHYLAXIS
     Dosage: 1 DF, 2X/DAY
     Route: 048
     Dates: start: 20160623, end: 20160704
  15. LASILIX /00032601/ [Concomitant]
     Active Substance: FUROSEMIDE
     Dosage: 20 MG, DAILY
  16. ZYLORIC [Concomitant]
     Active Substance: ALLOPURINOL
     Dosage: 300 MG, 1X/DAY

REACTIONS (3)
  - Tongue ulceration [Recovered/Resolved]
  - Mouth ulceration [Recovered/Resolved]
  - Rash [Recovered/Resolved]

NARRATIVE: CASE EVENT DATE: 20160629
